FAERS Safety Report 17673511 (Version 1)
Quarter: 2020Q2

REPORT INFORMATION
  Report Type: Spontaneous
  Country: ES (occurrence: ES)
  Receive Date: 20200416
  Receipt Date: 20200416
  Transmission Date: 20200713
  Serious: Yes (Other)
  Sender: FDA-Public Use
  Company Number: ES-AUROBINDO-AUR-APL-2020-015854

PATIENT
  Age: 72 Year
  Sex: Female

DRUGS (10)
  1. PACLITAXEL. [Suspect]
     Active Substance: PACLITAXEL
     Indication: METASTASES TO PERITONEUM
     Dosage: 4 CYCLES
     Route: 065
     Dates: start: 201109
  2. PACLITAXEL. [Suspect]
     Active Substance: PACLITAXEL
     Dosage: UNK, 6 MONTHS
     Route: 065
  3. LETROZOLE. [Suspect]
     Active Substance: LETROZOLE
     Indication: OVARIAN CANCER
     Dosage: UNK
     Route: 065
  4. LETROZOLE. [Suspect]
     Active Substance: LETROZOLE
     Indication: METASTASES TO PERITONEUM
  5. CARBOPLATIN. [Suspect]
     Active Substance: CARBOPLATIN
     Dosage: UNK, 4 CYCLES, EVERY WEEK
     Route: 065
     Dates: start: 201109
  6. PACLITAXEL. [Suspect]
     Active Substance: PACLITAXEL
     Dosage: UNK, 4 CYCLES, EVERY WEEK
     Route: 065
     Dates: start: 201109
  7. CARBOPLATIN. [Suspect]
     Active Substance: CARBOPLATIN
     Indication: OVARIAN CANCER
     Dosage: 6 CYCLES (18 DOSES), EVERY WEEK
     Route: 065
     Dates: start: 200907
  8. CARBOPLATIN. [Suspect]
     Active Substance: CARBOPLATIN
     Indication: METASTASES TO PERITONEUM
     Dosage: UNK, 6 MONTHS
     Route: 065
  9. ZOLEDRONIC ACID [Concomitant]
     Active Substance: ZOLEDRONIC ACID
     Indication: PROPHYLAXIS
     Dosage: UNK
     Route: 065
  10. PACLITAXEL. [Suspect]
     Active Substance: PACLITAXEL
     Indication: OVARIAN CANCER
     Dosage: 6 CYCLES (18 DOSES), EVERY WEEK
     Route: 065
     Dates: start: 200907, end: 201001

REACTIONS (7)
  - Bone pain [Unknown]
  - Asthenia [Unknown]
  - Drug intolerance [Unknown]
  - Disease progression [Unknown]
  - Haematotoxicity [Unknown]
  - Neutropenia [Unknown]
  - Drug tolerance decreased [Unknown]
